FAERS Safety Report 10138549 (Version 2)
Quarter: 2014Q2

REPORT INFORMATION
  Report Type: Spontaneous
  Country: US (occurrence: US)
  Receive Date: 20140429
  Receipt Date: 20140520
  Transmission Date: 20141212
  Serious: No
  Sender: FDA-Public Use
  Company Number: US-PFIZER INC-2014115652

PATIENT
  Age: 65 Year
  Sex: Female

DRUGS (1)
  1. LIPITOR [Suspect]
     Dosage: 80 MG, 1X/DAY
     Route: 048

REACTIONS (2)
  - Drug hypersensitivity [Unknown]
  - Vomiting [Recovered/Resolved]
